FAERS Safety Report 6777908-5 (Version None)
Quarter: 2010Q2

REPORT INFORMATION
  Report Type: 
  Country: None (occurrence: None)
  Receive Date: 20100618
  Receipt Date: 20100614
  Transmission Date: 20101027
  Serious: Yes (Hospitalization)
  Sender: FDA-Public Use
  Company Number: US-BIOGENIDEC-2010BI012734

PATIENT
  Age: 42 Year
  Sex: Female
  Weight: 74 kg

DRUGS (11)
  1. TYSABRI [Suspect]
     Indication: MULTIPLE SCLEROSIS
     Route: 042
     Dates: start: 20090817
  2. AVIANE-28 [Concomitant]
     Indication: CONTRACEPTION
     Dates: start: 19950101
  3. REMERON [Concomitant]
     Indication: SLEEP DISORDER
     Dates: start: 20070101
  4. VENTOLIN [Concomitant]
     Indication: ASTHMA
     Dates: start: 20000101
  5. FLOVENT [Concomitant]
     Indication: ASTHMA
     Dates: start: 20000101
  6. MULTIVITAMIN (NOS) [Concomitant]
     Indication: SUPPLEMENTATION THERAPY
     Dates: start: 20050101
  7. VITAMIN B COMPLEX CAP [Concomitant]
     Indication: SUPPLEMENTATION THERAPY
     Dates: start: 20050101
  8. LYRICA [Concomitant]
     Indication: NEURALGIA
     Dates: start: 20081101
  9. BACLOFEN [Concomitant]
     Indication: MUSCLE SPASTICITY
     Dates: start: 20090301
  10. LASIX [Concomitant]
     Dates: start: 20100301
  11. VICOPROFEN [Concomitant]
     Indication: PAIN
     Dates: start: 20090601

REACTIONS (3)
  - PNEUMONIA [None]
  - PNEUMONITIS [None]
  - PULMONARY EMBOLISM [None]
